FAERS Safety Report 18318824 (Version 7)
Quarter: 2024Q2

REPORT INFORMATION
  Report Type: Other
  Country: ES (occurrence: ES)
  Receive Date: 20200928
  Receipt Date: 20240606
  Transmission Date: 20240715
  Serious: Yes (Other)
  Sender: FDA-Public Use
  Company Number: ES-KRKA-ES2020K15134LIT

PATIENT
  Age: 64 Year
  Sex: Female

DRUGS (14)
  1. ALECTINIB [Suspect]
     Active Substance: ALECTINIB
     Indication: Non-small cell lung cancer
     Dosage: 450 MG, 2X PER DAY
     Route: 048
  2. ALECTINIB [Suspect]
     Active Substance: ALECTINIB
     Dosage: 1200 MG, PER DAY
     Route: 048
  3. ALECTINIB [Suspect]
     Active Substance: ALECTINIB
     Dosage: 300 MG, 2X PER DAY
     Route: 048
  4. ROSUVASTATIN CALCIUM [Suspect]
     Active Substance: ROSUVASTATIN CALCIUM
     Indication: Product used for unknown indication
     Route: 065
  5. TORSEMIDE [Suspect]
     Active Substance: TORSEMIDE
     Indication: Product used for unknown indication
     Dosage: UNK
     Route: 065
  6. CALCIUM CARBONATE\CHOLECALCIFEROL [Suspect]
     Active Substance: CALCIUM CARBONATE\CHOLECALCIFEROL
     Indication: Product used for unknown indication
     Dosage: UNK
     Route: 065
  7. NALOXONE [Suspect]
     Active Substance: NALOXONE
     Indication: Product used for unknown indication
     Dosage: UNK
     Route: 065
  8. MIRTAZAPINE [Suspect]
     Active Substance: MIRTAZAPINE
     Indication: Product used for unknown indication
     Dosage: UNK
     Route: 065
  9. PANTOPRAZOLE [Suspect]
     Active Substance: PANTOPRAZOLE
     Indication: Product used for unknown indication
     Dosage: UNK
     Route: 065
  10. ENOXAPARIN [Suspect]
     Active Substance: ENOXAPARIN
     Indication: Product used for unknown indication
     Dosage: UNK
     Route: 065
  11. ZOPICLONE [Suspect]
     Active Substance: ZOPICLONE
     Indication: Product used for unknown indication
     Dosage: UNK
     Route: 065
  12. DEXAMETHASONE [Suspect]
     Active Substance: DEXAMETHASONE
     Indication: Product used for unknown indication
     Dosage: UNK
     Route: 065
  13. OXYCODONE [Suspect]
     Active Substance: OXYCODONE\OXYCODONE HYDROCHLORIDE
     Indication: Product used for unknown indication
     Dosage: UNK
     Route: 065
  14. NADROPARIN [Suspect]
     Active Substance: NADROPARIN
     Indication: Product used for unknown indication
     Dosage: UNK
     Route: 065

REACTIONS (20)
  - Rhabdomyolysis [Recovering/Resolving]
  - Drug interaction [Recovering/Resolving]
  - Decreased appetite [Unknown]
  - Metastases to central nervous system [Unknown]
  - Transaminases increased [Unknown]
  - Gastritis [Unknown]
  - Nausea [Unknown]
  - Pelvic pain [Unknown]
  - Large intestine perforation [Unknown]
  - Retroperitoneal haemorrhage [Unknown]
  - Sepsis [Unknown]
  - Pelvic haematoma [Unknown]
  - Pyelonephritis [Unknown]
  - Pyrexia [Unknown]
  - Diverticulitis [Unknown]
  - Retroperitoneal haematoma [Unknown]
  - Cachexia [Unknown]
  - Arthralgia [Unknown]
  - Peritonitis [Unknown]
  - General physical health deterioration [Unknown]
